FAERS Safety Report 8068842-1 (Version None)
Quarter: 2012Q1

REPORT INFORMATION
  Report Type: 
  Country: None (occurrence: None)
  Receive Date: 20120125
  Receipt Date: 20120118
  Transmission Date: 20120608
  Serious: Yes (Death, Other)
  Sender: FDA-Public Use
  Company Number: US-BIOGENIDEC-2012BI000436

PATIENT
  Age: 25 Year
  Sex: Male

DRUGS (8)
  1. TYSABRI [Suspect]
     Indication: MULTIPLE SCLEROSIS
     Route: 042
     Dates: start: 20050225, end: 20050325
  2. RITALIN [Concomitant]
     Indication: FATIGUE
  3. RITALIN [Concomitant]
     Indication: ATTENTION DEFICIT/HYPERACTIVITY DISORDER
  4. XANAX [Concomitant]
     Indication: ANXIETY
  5. BACLOFEN [Concomitant]
     Indication: MUSCLE SPASTICITY
  6. REMERON [Concomitant]
     Indication: DEPRESSION
  7. TYSABRI [Suspect]
     Route: 042
     Dates: start: 20100728, end: 20111117
  8. EFFEXOR XR [Concomitant]
     Indication: DEPRESSION

REACTIONS (1)
  - COMPLETED SUICIDE [None]
